FAERS Safety Report 5620142-2 (Version None)
Quarter: 2008Q1

REPORT INFORMATION
  Report Type: 
  Country: None (occurrence: None)
  Receive Date: 20080208
  Receipt Date: 20080130
  Transmission Date: 20080703
  Serious: Yes (Hospitalization)
  Sender: FDA-Public Use
  Company Number: GB-ROCHE-544739

PATIENT
  Age: 68 Year
  Sex: Female
  Weight: 116.1 kg

DRUGS (2)
  1. ORLISTAT [Suspect]
     Indication: OBESITY
     Route: 048
     Dates: start: 20071021, end: 20071225
  2. 2 CONCOMITANT DRUGS [Concomitant]
     Indication: ASTHMA
     Dosage: DRUG: TWO INHALERS.
     Route: 055

REACTIONS (2)
  - CONTUSION [None]
  - FALL [None]
